FAERS Safety Report 24754515 (Version 1)
Quarter: 2024Q4

REPORT INFORMATION
  Report Type: Spontaneous
  Country: US (occurrence: US)
  Receive Date: 20241219
  Receipt Date: 20241219
  Transmission Date: 20250115
  Serious: Yes (Other)
  Sender: TEVA
  Company Number: US-TEVA-VS-3273169

PATIENT
  Age: 61 Year
  Sex: Female
  Weight: 92.9 kg

DRUGS (13)
  1. AJOVY [Suspect]
     Active Substance: FREMANEZUMAB-VFRM
     Indication: Migraine prophylaxis
     Dosage: 225MG/1.5ML
     Route: 058
     Dates: start: 20240113
  2. DIAZEPAM [Concomitant]
     Active Substance: DIAZEPAM
     Indication: Product used for unknown indication
     Dosage: FILLED ON 2024-11-25
  3. DULOXETINE [Concomitant]
     Active Substance: DULOXETINE
     Indication: Product used for unknown indication
     Dosage: DELAYED RELEASE, FILLED ON 2024-09-23
  4. ESOMEPRAZOLE MAGNESIUM [Concomitant]
     Active Substance: ESOMEPRAZOLE MAGNESIUM
     Indication: Product used for unknown indication
     Dosage: IN THE MORNING FOR 90 DAYS, FILLED ON 2024-06-17
     Route: 048
  5. LINZESS [Concomitant]
     Active Substance: LINACLOTIDE
     Indication: Product used for unknown indication
     Dosage: FILLED ON 2024-05-01
  6. MELOXICAM [Concomitant]
     Active Substance: MELOXICAM
     Indication: Product used for unknown indication
     Dosage: FILLED ON 2024-06-27
  7. ONDANSETRON [Concomitant]
     Active Substance: ONDANSETRON
     Indication: Product used for unknown indication
     Dosage: DISINTEGRATING, TRANSLINGUAL FOR 5 DAYS. FILLE ON 2024-04-05
  8. PROPRANOLOL [Concomitant]
     Active Substance: PROPRANOLOL HYDROCHLORIDE
     Indication: Product used for unknown indication
     Dosage: 24 HR, EXTENDED RELEASE, FILLED ON 2024-06-27
  9. VITAMIN D3 [Concomitant]
     Active Substance: CHOLECALCIFEROL
     Indication: Product used for unknown indication
     Dosage: 2000 UNIT
     Route: 048
     Dates: start: 20240131
  10. ZEPBOUND [Concomitant]
     Active Substance: TIRZEPATIDE
     Indication: Product used for unknown indication
     Dosage: 10MG/0.5ML, EVENING FOR 84 DAYS, FILLED ON 2024-11-23
     Route: 058
  11. ZOLPIDEM [Concomitant]
     Active Substance: ZOLPIDEM TARTRATE
     Indication: Product used for unknown indication
     Dosage: FILLED ON 2024-11-25
  12. QUETIAPINE [Concomitant]
     Active Substance: QUETIAPINE
     Indication: Product used for unknown indication
  13. REXULTI [Concomitant]
     Active Substance: BREXPIPRAZOLE
     Indication: Product used for unknown indication
     Dates: end: 2024

REACTIONS (16)
  - Tardive dyskinesia [Unknown]
  - Obesity [Unknown]
  - Insomnia [Unknown]
  - Dry mouth [Unknown]
  - Dysphagia [Unknown]
  - Memory impairment [Not Recovered/Not Resolved]
  - Gastrooesophageal reflux disease [Unknown]
  - Tremor [Recovering/Resolving]
  - Mobility decreased [Unknown]
  - Cervical spinal stenosis [Recovering/Resolving]
  - Urinary incontinence [Unknown]
  - Road traffic accident [Unknown]
  - Cognitive disorder [Unknown]
  - Parkinson^s disease [Unknown]
  - Fall [Unknown]
  - Gait disturbance [Unknown]

NARRATIVE: CASE EVENT DATE: 20231205
